FAERS Safety Report 7563652-3 (Version None)
Quarter: 2011Q2

REPORT INFORMATION
  Report Type: 
  Country: None (occurrence: None)
  Receive Date: 20110622
  Receipt Date: 20110607
  Transmission Date: 20111010
  Serious: Yes (Other)
  Sender: FDA-Public Use
  Company Number: BR-ROCHE-780903

PATIENT
  Age: 15 Year
  Sex: Female

DRUGS (3)
  1. SELENE [Concomitant]
     Route: 048
  2. ISOTRETINOIN [Suspect]
     Route: 048
  3. ISOTRETINOIN [Suspect]
     Indication: ACNE
     Route: 048
     Dates: start: 20100101, end: 20100101

REACTIONS (7)
  - GASTROINTESTINAL HAEMORRHAGE [None]
  - HAEMATOCRIT DECREASED [None]
  - COLITIS EROSIVE [None]
  - LYMPHANGIECTASIA [None]
  - ABDOMINAL PAIN [None]
  - HYPOVOLAEMIA [None]
  - GASTROOESOPHAGEAL HETEROTOPIA [None]
